FAERS Safety Report 5072231-1 (Version None)
Quarter: 2006Q3

REPORT INFORMATION
  Report Type: 
  Country: None (occurrence: None)
  Receive Date: 20060807
  Receipt Date: 20060731
  Transmission Date: 20061208
  Serious: Yes (Other)
  Sender: FDA-Public Use
  Company Number: US-BRISTOL-MYERS SQUIBB COMPANY-13461876

PATIENT
  Sex: Female

DRUGS (2)
  1. ESTRACE [Suspect]
     Indication: HORMONE THERAPY
  2. PREMARIN [Suspect]
     Indication: HORMONE THERAPY

REACTIONS (1)
  - OVARIAN CANCER [None]
